FAERS Safety Report 7188120-2 (Version None)
Quarter: 2010Q4

REPORT INFORMATION
  Report Type: 
  Country: None (occurrence: None)
  Receive Date: 20101222
  Receipt Date: 20101221
  Transmission Date: 20110411
  Serious: Yes (Hospitalization, Other)
  Sender: FDA-Public Use
  Company Number: JP-PFIZER INC-2010176857

PATIENT
  Age: 82 Year
  Sex: Female

DRUGS (2)
  1. ZOLOFT [Suspect]
     Indication: DEPRESSION
     Dosage: UNK
     Route: 048
     Dates: start: 20101211, end: 20101217
  2. ZOLOFT [Suspect]
     Dosage: UNK
     Route: 048
     Dates: start: 20101218

REACTIONS (2)
  - EATING DISORDER [None]
  - HYPONATRAEMIA [None]
